FAERS Safety Report 4791105-4 (Version None)
Quarter: 2005Q4

REPORT INFORMATION
  Report Type: 
  Country: None (occurrence: None)
  Receive Date: 20051007
  Receipt Date: 20050928
  Transmission Date: 20060501
  Serious: Yes (Other)
  Sender: FDA-Public Use
  Company Number: 200516969US

PATIENT
  Age: 42 Year
  Sex: Male
  Weight: 82.3 kg

DRUGS (2)
  1. ANZEMET [Suspect]
     Indication: PROPHYLAXIS OF NAUSEA AND VOMITING
     Dates: start: 20021031, end: 20021031
  2. REGLAN [Concomitant]

REACTIONS (5)
  - ASTHMA [None]
  - DISEASE RECURRENCE [None]
  - PNEUMONIA [None]
  - PNEUMONIA ASPIRATION [None]
  - VOMITING [None]
